FAERS Safety Report 14430833 (Version 1)
Quarter: 2018Q1

REPORT INFORMATION
  Report Type: Spontaneous
  Country: US (occurrence: US)
  Receive Date: 20180124
  Receipt Date: 20180124
  Transmission Date: 20180509
  Serious: No
  Sender: FDA-Public Use
  Company Number: None

PATIENT
  Age: 74 Year
  Sex: Female
  Weight: 49.9 kg

DRUGS (17)
  1. GLIPIZIDE. [Concomitant]
     Active Substance: GLIPIZIDE
  2. GLUCOSAMINE CHONDROITIN + MSM [Concomitant]
     Active Substance: CHONDROITIN SULFATE (BOVINE)\DIMETHYL SULFONE\GLUCOSAMINE SULFATE
  3. MAGNESIUM [Concomitant]
     Active Substance: MAGNESIUM
  4. CRANBERRY. [Concomitant]
     Active Substance: CRANBERRY
  5. ALENDRONATE SODIUM. [Concomitant]
     Active Substance: ALENDRONATE SODIUM
  6. ELIQUIS [Suspect]
     Active Substance: APIXABAN
     Indication: ANTICOAGULANT THERAPY
     Dosage: FREQUENCY - 2X DAILY - AM + PM
     Route: 048
     Dates: start: 20171123, end: 20171207
  7. B-6 [Concomitant]
  8. ASPIRIN. [Concomitant]
     Active Substance: ASPIRIN
  9. LUTEIN [Concomitant]
     Active Substance: LUTEIN
  10. VITAMIN B12 [Concomitant]
     Active Substance: CYANOCOBALAMIN
  11. IRON [Concomitant]
     Active Substance: IRON
  12. ACE INHIBITOR [Concomitant]
     Active Substance: UNSPECIFIED INGREDIENT
  13. RAMIPRIL. [Concomitant]
     Active Substance: RAMIPRIL
  14. METFORMIN [Concomitant]
     Active Substance: METFORMIN HYDROCHLORIDE
  15. COMPLETE MULTI VITAMIN FOR WOMEN 50+ [Concomitant]
  16. CALCIUM NITRATE [Concomitant]
     Active Substance: CALCIUM NITRATE
  17. HAIR, SKIN + NAILS [Concomitant]
     Active Substance: MINERALS\VITAMINS

REACTIONS (1)
  - Fall [None]

NARRATIVE: CASE EVENT DATE: 20171123
